FAERS Safety Report 21147206 (Version 1)
Quarter: 2022Q3

REPORT INFORMATION
  Report Type: Spontaneous
  Country: US (occurrence: US)
  Receive Date: 20220729
  Receipt Date: 20220729
  Transmission Date: 20221027
  Serious: Yes (Life-Threatening, Hospitalization)
  Sender: FDA-Public Use
  Company Number: US-MYLANLABS-2022M1081523

PATIENT
  Age: 59 Year
  Sex: Male

DRUGS (1)
  1. DAPTOMYCIN [Suspect]
     Active Substance: DAPTOMYCIN
     Indication: Product used for unknown indication
     Dosage: UNK
     Route: 065

REACTIONS (7)
  - Eosinophilic pneumonia [Not Recovered/Not Resolved]
  - Pneumomediastinum [Not Recovered/Not Resolved]
  - Hypotension [Not Recovered/Not Resolved]
  - Respiratory distress [Not Recovered/Not Resolved]
  - Subcutaneous emphysema [Not Recovered/Not Resolved]
  - Gastrointestinal haemorrhage [Not Recovered/Not Resolved]
  - Renal failure [Not Recovered/Not Resolved]
